FAERS Safety Report 24071739 (Version 1)
Quarter: 2024Q3

REPORT INFORMATION
  Report Type: Spontaneous
  Country: FR (occurrence: FR)
  Receive Date: 20240710
  Receipt Date: 20240710
  Transmission Date: 20241017
  Serious: No
  Sender: ROCHE
  Company Number: None

PATIENT
  Age: 25 Year
  Sex: Female

DRUGS (2)
  1. EVRYSDI [Suspect]
     Active Substance: RISDIPLAM
     Indication: Spinal muscular atrophy
     Route: 065
     Dates: start: 20240112
  2. CETIRIZINE [Concomitant]
     Active Substance: CETIRIZINE HYDROCHLORIDE
     Indication: Hypersensitivity

REACTIONS (2)
  - Menstrual disorder [Unknown]
  - Intermenstrual bleeding [Unknown]

NARRATIVE: CASE EVENT DATE: 20240212
